FAERS Safety Report 8433586-0 (Version None)
Quarter: 2012Q2

REPORT INFORMATION
  Report Type: 
  Country: None (occurrence: None)
  Receive Date: 20120613
  Receipt Date: 20120604
  Transmission Date: 20120825
  Serious: Yes (Other)
  Sender: FDA-Public Use
  Company Number: US-ASTRAZENECA-2012SE37679

PATIENT
  Sex: Female
  Weight: 75.3 kg

DRUGS (4)
  1. NEXIUM [Suspect]
     Route: 048
     Dates: start: 20090101
  2. LISINOPRIL AND HYDROCHLOROTHIAZIDE [Concomitant]
     Dosage: 20/12.5 MG DAILY
  3. POTASSIUM [Concomitant]
  4. STROBITE [Concomitant]

REACTIONS (4)
  - BREAST CANCER [None]
  - SLEEP APNOEA SYNDROME [None]
  - NEUROPATHY PERIPHERAL [None]
  - ATRIAL FIBRILLATION [None]
